FAERS Safety Report 11651359 (Version 1)
Quarter: 2015Q4

REPORT INFORMATION
  Report Type: Spontaneous
  Country: BE (occurrence: BE)
  Receive Date: 20151022
  Receipt Date: 20151022
  Transmission Date: 20160304
  Serious: Yes (Other)
  Sender: FDA-Public Use
  Company Number: BE-AMGEN-BELSP2015108383

PATIENT
  Age: 72 Year
  Sex: Female

DRUGS (1)
  1. PROLIA [Suspect]
     Active Substance: DENOSUMAB
     Indication: PRODUCT USED FOR UNKNOWN INDICATION
     Dosage: 60 MG, UNK
     Route: 065

REACTIONS (9)
  - Bone disorder [Unknown]
  - Mouth ulceration [Unknown]
  - Device issue [Unknown]
  - Pain in jaw [Unknown]
  - Bone atrophy [Unknown]
  - Neuropathy peripheral [Unknown]
  - Arthralgia [Unknown]
  - Osteonecrosis of jaw [Unknown]
  - Malocclusion [Unknown]
